FAERS Safety Report 5507928-X (Version None)
Quarter: 2007Q4

REPORT INFORMATION
  Report Type: 
  Country: None (occurrence: None)
  Receive Date: 20071106
  Receipt Date: 20071024
  Transmission Date: 20080405
  Serious: Yes (Other)
  Sender: FDA-Public Use
  Company Number: SE-PFIZER INC-2007077372

PATIENT
  Sex: Male

DRUGS (5)
  1. LYRICA [Suspect]
     Indication: GENERALISED ANXIETY DISORDER
     Dosage: DAILY DOSE:450MG-FREQ:DAILY
     Route: 048
  2. OXAZEPAM [Interacting]
     Dosage: DAILY DOSE:70MG-FREQ:DAILY
  3. BUSPIRON [Concomitant]
     Dosage: DAILY DOSE:70MG-FREQ:DAILY
  4. AMITRIPTYLINE HCL [Concomitant]
     Dosage: DAILY DOSE:100MG-FREQ:DAILY
  5. MOCLOBEMIDE [Concomitant]
     Dosage: DAILY DOSE:450MG-FREQ:DAILY

REACTIONS (12)
  - ANXIETY [None]
  - DISSOCIATION [None]
  - DISTURBANCE IN ATTENTION [None]
  - DRUG INEFFECTIVE FOR UNAPPROVED INDICATION [None]
  - DRUG INTERACTION [None]
  - DRY MOUTH [None]
  - FATIGUE [None]
  - HEADACHE [None]
  - INSOMNIA [None]
  - IRRITABILITY [None]
  - PAIN [None]
  - VERTIGO [None]
